FAERS Safety Report 8988628 (Version 4)
Quarter: 2014Q2

REPORT INFORMATION
  Report Type: Report from Study
  Country: IL (occurrence: IL)
  Receive Date: 20121228
  Receipt Date: 20140529
  Transmission Date: 20141212
  Serious: Yes (Other)
  Sender: FDA-Public Use
  Company Number: PHHY2012IL120538

PATIENT
  Age: 29 Year
  Sex: Female

DRUGS (1)
  1. GILENYA [Suspect]
     Indication: MULTIPLE SCLEROSIS
     Dosage: 0.5 MG, QD
     Route: 048
     Dates: start: 20120918

REACTIONS (6)
  - Thyroid disorder [Not Recovered/Not Resolved]
  - Blood thyroid stimulating hormone increased [Unknown]
  - Arthralgia [Not Recovered/Not Resolved]
  - Chondropathy [Unknown]
  - Vaginal infection [Unknown]
  - Urinary tract infection [Recovered/Resolved]
